FAERS Safety Report 24802419 (Version 1)
Quarter: 2025Q1

REPORT INFORMATION
  Report Type: Spontaneous
  Country: CN (occurrence: CN)
  Receive Date: 20250103
  Receipt Date: 20250103
  Transmission Date: 20250409
  Serious: Yes (Other)
  Sender: Haleon PLC
  Company Number: CN-HALEON-2219683

PATIENT
  Age: 31 Year
  Sex: Female
  Weight: 52 kg

DRUGS (3)
  1. IBUPROFEN [Suspect]
     Active Substance: IBUPROFEN
     Indication: Mood altered
     Route: 048
     Dates: start: 20241021, end: 20241021
  2. METOPROLOL SUCCINATE [Suspect]
     Active Substance: METOPROLOL SUCCINATE
     Indication: Mood altered
     Route: 048
     Dates: start: 20241021, end: 20241021
  3. TYLENOL [Suspect]
     Active Substance: ACETAMINOPHEN
     Indication: Mood altered
     Route: 048
     Dates: start: 20241021, end: 20241021

REACTIONS (5)
  - Delirium [Recovering/Resolving]
  - Toxicity to various agents [Recovering/Resolving]
  - Intentional product misuse [Unknown]
  - Intentional overdose [Unknown]
  - Illness [Recovering/Resolving]

NARRATIVE: CASE EVENT DATE: 20241021
